FAERS Safety Report 9181572 (Version 8)
Quarter: 2018Q1

REPORT INFORMATION
  Report Type: Spontaneous
  Country: GB (occurrence: GB)
  Receive Date: 20130322
  Receipt Date: 20180323
  Transmission Date: 20180509
  Serious: Yes (Death, Hospitalization, Other)
  Sender: FDA-Public Use
  Company Number: GB-JNJFOC-2006092111

PATIENT
  Age: 26 Year
  Sex: Female

DRUGS (3)
  1. IBUPROFEN. [Suspect]
     Active Substance: IBUPROFEN
     Indication: PRODUCT USED FOR UNKNOWN INDICATION
     Route: 048
  2. IBUPROFEN. [Suspect]
     Active Substance: IBUPROFEN
     Route: 048
  3. IBUPROFEN. [Suspect]
     Active Substance: IBUPROFEN
     Indication: PRODUCT USED FOR UNKNOWN INDICATION
     Dosage: UP TO 132 SUSTAINED-RELEASE TABLETS, UP TO 105 G IN ONE DAY IN TOTAL
     Route: 048

REACTIONS (16)
  - Hypotension [Unknown]
  - Fall [Unknown]
  - Loss of consciousness [Fatal]
  - Renal impairment [Fatal]
  - Myocardial ischaemia [Fatal]
  - Haemodynamic instability [Unknown]
  - Intentional overdose [Fatal]
  - Circulatory collapse [Fatal]
  - Vasodilatation [Fatal]
  - Blood pressure systolic decreased [Fatal]
  - Metabolic acidosis [Fatal]
  - Drug abuse [Fatal]
  - Poisoning deliberate [Fatal]
  - Arrhythmia [Fatal]
  - Cardiac arrest [Fatal]
  - Toxicity to various agents [Fatal]
